FAERS Safety Report 6528403-X (Version None)
Quarter: 2010Q1

REPORT INFORMATION
  Report Type: 
  Country: None (occurrence: None)
  Receive Date: 20100106
  Receipt Date: 20100104
  Transmission Date: 20100710
  Serious: Yes (Death, Hospitalization)
  Sender: FDA-Public Use
  Company Number: A0835044A

PATIENT
  Age: 44 Year
  Sex: Female
  Weight: 68.2 kg

DRUGS (6)
  1. TYKERB [Suspect]
     Indication: BREAST CANCER
     Dosage: 1000MG PER DAY
     Route: 048
     Dates: end: 20090330
  2. XELODA [Suspect]
     Indication: BREAST CANCER
     Dosage: 1500MG TWICE PER DAY
     Route: 065
     Dates: end: 20090330
  3. PAIN MEDICATION [Concomitant]
  4. DARVON [Concomitant]
  5. ZOMETA [Concomitant]
  6. PROCRIT [Concomitant]

REACTIONS (22)
  - ABDOMINAL SYMPTOM [None]
  - ARTHRALGIA [None]
  - ASCITES [None]
  - BACK PAIN [None]
  - BLOOD PRESSURE INCREASED [None]
  - BREAST CANCER [None]
  - CARDIOPULMONARY FAILURE [None]
  - CENTRAL NERVOUS SYSTEM LESION [None]
  - CONSTIPATION [None]
  - DECREASED APPETITE [None]
  - GLOSSODYNIA [None]
  - HEADACHE [None]
  - MEDIASTINAL MASS [None]
  - METASTASES TO LIVER [None]
  - NAUSEA [None]
  - OEDEMA PERIPHERAL [None]
  - ORAL FUNGAL INFECTION [None]
  - OROPHARYNGEAL PLAQUE [None]
  - PAIN [None]
  - PERITONEAL FLUID ANALYSIS ABNORMAL [None]
  - SWELLING FACE [None]
  - WAIST CIRCUMFERENCE INCREASED [None]
